FAERS Safety Report 8225948 (Version 2)
Quarter: 2012Q4

REPORT INFORMATION
  Report Type: 
  Country: US (occurrence: US)
  Receive Date: 20111103
  Receipt Date: 20121015
  Transmission Date: 20130627
  Serious: No
  Sender: FDA-Public Use
  Company Number: US-BRISTOL-MYERS SQUIBB COMPANY-15906068

PATIENT

DRUGS (1)
  1. KENALOG-40 INJ [Suspect]
     Dosage: mixed with 1% lidocaine,1 df = .25-2cc^s
48 vials
     Route: 014
     Dates: start: 20110328, end: 20110430

REACTIONS (1)
  - Medication error [Unknown]
